FAERS Safety Report 16359917 (Version 3)
Quarter: 2021Q3

REPORT INFORMATION
  Report Type: Report from Study
  Country: CO (occurrence: CO)
  Receive Date: 20190528
  Receipt Date: 20210831
  Transmission Date: 20211014
  Serious: Yes (Other)
  Sender: FDA-Public Use
  Company Number: CO-ASTELLAS-2018US036008

PATIENT
  Age: 47 Year
  Sex: Female
  Weight: 62 kg

DRUGS (6)
  1. MYCOPHENOLATE [Concomitant]
     Active Substance: MYCOPHENOLIC ACID
     Indication: TRANSPLANT
     Route: 048
     Dates: start: 20150312
  2. TACROLIMUS. [Suspect]
     Active Substance: TACROLIMUS
     Route: 048
     Dates: start: 20190522
  3. TACROLIMUS. [Suspect]
     Active Substance: TACROLIMUS
     Route: 048
     Dates: end: 20190521
  4. TACROLIMUS. [Suspect]
     Active Substance: TACROLIMUS
     Indication: RENAL TRANSPLANT
     Route: 048
     Dates: start: 20150312
  5. MYCOPHENOLATE [Concomitant]
     Active Substance: MYCOPHENOLIC ACID
     Dosage: 1X500MG AT MORNING AND 2X500MG AT AFTERNOON, OTHER
     Route: 048
     Dates: start: 20180312
  6. METOPROLOL. [Concomitant]
     Active Substance: METOPROLOL
     Indication: HEART RATE ABNORMAL
     Route: 048

REACTIONS (11)
  - Immunosuppressant drug level increased [Not Recovered/Not Resolved]
  - Pyrexia [Unknown]
  - Blood pressure abnormal [Recovering/Resolving]
  - Tachycardia [Recovering/Resolving]
  - Weight increased [Recovered/Resolved]
  - Pain [Unknown]
  - Malaise [Not Recovered/Not Resolved]
  - Tremor [Recovering/Resolving]
  - Dizziness [Recovering/Resolving]
  - Gastrointestinal disorder [Not Recovered/Not Resolved]
  - Influenza [Not Recovered/Not Resolved]

NARRATIVE: CASE EVENT DATE: 20150912
